FAERS Safety Report 6458660-X (Version None)
Quarter: 2009Q4

REPORT INFORMATION
  Report Type: 
  Country: None (occurrence: None)
  Receive Date: 20091120
  Receipt Date: 20091111
  Transmission Date: 20100525
  Serious: Yes (Death, Life-Threatening)
  Sender: FDA-Public Use
  Company Number: TCI20090A04271

PATIENT
  Age: 47 Year
  Sex: Male

DRUGS (6)
  1. ACTOS [Suspect]
     Indication: DIABETES MELLITUS
     Dosage: 15 MG (15 MG,1 IN 1 D) PER ORAL
     Route: 048
     Dates: start: 20090727, end: 20091018
  2. METFORMIN HYDROCHLORIDE [Concomitant]
  3. BACLOFEN [Concomitant]
  4. URSODIOL [Concomitant]
  5. NOVORAPID FLEXPEN (INSULIN ASPART) [Concomitant]
  6. LEVEMIR [Concomitant]

REACTIONS (6)
  - ALTERED STATE OF CONSCIOUSNESS [None]
  - BRAIN HERNIATION [None]
  - BRAIN OEDEMA [None]
  - CEREBRAL HAEMORRHAGE [None]
  - DIABETES INSIPIDUS [None]
  - HEMIPLEGIA [None]
